FAERS Safety Report 6204377-6 (Version None)
Quarter: 2009Q2

REPORT INFORMATION
  Report Type: 
  Country: None (occurrence: None)
  Receive Date: 20090518
  Receipt Date: 20090121
  Transmission Date: 20091009
  Serious: No
  Sender: FDA-Public Use
  Company Number: WAES 0901USA03058

PATIENT
  Age: 71 Year
  Sex: Male

DRUGS (9)
  1. JANUVIA [Suspect]
     Indication: DIABETES MELLITUS
     Dosage: 50 MG/DAILY/PO; 25 MG/DAILY/PO; DAILY/PO
     Route: 048
     Dates: end: 20081101
  2. JANUVIA [Suspect]
     Indication: DIABETES MELLITUS
     Dosage: 50 MG/DAILY/PO; 25 MG/DAILY/PO; DAILY/PO
     Route: 048
     Dates: start: 20081101
  3. COMBIVENT [Concomitant]
  4. LIPITOR [Concomitant]
  5. PLAVIX [Concomitant]
  6. ALBUTEROL SULFATE [Concomitant]
  7. GLYBURIDE [Concomitant]
  8. LEVOTHYROXINE SODIUM [Concomitant]
  9. VERAPAMIL [Concomitant]

REACTIONS (3)
  - BLOOD GLUCOSE ABNORMAL [None]
  - BLOOD GLUCOSE INCREASED [None]
  - WRONG TECHNIQUE IN DRUG USAGE PROCESS [None]
